FAERS Safety Report 8925033 (Version 1)
Quarter: 2012Q4

REPORT INFORMATION
  Report Type: Spontaneous
  Country: US (occurrence: None)
  Receive Date: 20121126
  Receipt Date: 20121126
  Transmission Date: 20130627
  Serious: Yes (Hospitalization, Other)
  Sender: FDA-Public Use
  Company Number: None

PATIENT
  Age: 66 Year
  Sex: Female
  Weight: 108.86 kg

DRUGS (2)
  1. RIVAROXABAN [Suspect]
     Indication: THROMBOSIS PROPHYLAXIS
     Dosage: 20 mg.  Once Daily with Evening Meal
     Dates: start: 20121015, end: 20121019
  2. RIVAROXABAN [Suspect]
     Indication: HEARTBEATS IRREGULAR
     Dosage: 20 mg.  Once Daily with Evening Meal
     Dates: start: 20121015, end: 20121019

REACTIONS (4)
  - White blood cell count increased [None]
  - Contusion [None]
  - Skin discolouration [None]
  - Fear [None]
